FAERS Safety Report 10518590 (Version 1)
Quarter: 2014Q4

REPORT INFORMATION
  Report Type: Spontaneous
  Country: GB (occurrence: GB)
  Receive Date: 20141015
  Receipt Date: 20141015
  Transmission Date: 20150528
  Serious: Yes (Other)
  Sender: FDA-Public Use
  Company Number: GB-LEO PHARMA-223106

PATIENT
  Age: 68 Year
  Sex: Male

DRUGS (2)
  1. PICATO [Suspect]
     Active Substance: INGENOL MEBUTATE
     Indication: ACTINIC KERATOSIS
     Route: 061
     Dates: start: 20130215, end: 20130218
  2. TOCTINO [Concomitant]
     Active Substance: ALITRETINOIN
     Indication: HAND DERMATITIS
     Route: 048
     Dates: start: 201112

REACTIONS (3)
  - Cancer surgery [Recovering/Resolving]
  - Atypical fibroxanthoma [Recovering/Resolving]
  - Squamous cell carcinoma [Recovering/Resolving]

NARRATIVE: CASE EVENT DATE: 201306
